FAERS Safety Report 7884912-2 (Version None)
Quarter: 2011Q4

REPORT INFORMATION
  Report Type: 
  Country: None (occurrence: None)
  Receive Date: 20111102
  Receipt Date: 20111021
  Transmission Date: 20120403
  Serious: Yes (Other)
  Sender: FDA-Public Use
  Company Number: US-BAYER-2011-048361

PATIENT
  Age: 30 Year
  Sex: Female
  Weight: 68.027 kg

DRUGS (6)
  1. LUPRON [Concomitant]
     Indication: INFERTILITY FEMALE
     Dosage: 5 MG/ML, UNK
  2. OVIDREL [Concomitant]
     Indication: INFERTILITY FEMALE
     Dosage: 250 MCG/0.5 MG
  3. PROGESTERONE [Concomitant]
     Indication: INFERTILITY FEMALE
     Dosage: 5C MG/ML OIL, 10 MG VIAL 1 ML
     Route: 030
  4. YAZ [Suspect]
     Indication: PRODUCT USED FOR UNKNOWN INDICATION
     Dosage: UNK
     Route: 048
     Dates: start: 20090101, end: 20090101
  5. FOLLISTIM AQ [Concomitant]
     Indication: INFERTILITY FEMALE
     Dosage: 900 U/ML, UNK
  6. LOESTRIN 1.5/30-21 [Concomitant]

REACTIONS (5)
  - INJURY [None]
  - CHEST PAIN [None]
  - DYSPNOEA [None]
  - CHOLELITHIASIS [None]
  - PAIN [None]
